FAERS Safety Report 17907541 (Version 1)
Quarter: 2020Q2

REPORT INFORMATION
  Report Type: Spontaneous
  Country: US (occurrence: US)
  Receive Date: 20200617
  Receipt Date: 20200617
  Transmission Date: 20200714
  Serious: Yes (Hospitalization)
  Sender: FDA-Public Use
  Company Number: None

PATIENT
  Age: 56 Year
  Sex: Male

DRUGS (18)
  1. PROCRIT [Suspect]
     Active Substance: ERYTHROPOIETIN
     Indication: NEPHROGENIC ANAEMIA
     Dates: start: 20181113
  2. ROSUVASTATIN. [Concomitant]
     Active Substance: ROSUVASTATIN
  3. AMLODIPINE [Concomitant]
     Active Substance: AMLODIPINE BESYLATE
  4. DOCUSATE [Concomitant]
     Active Substance: DOCUSATE
  5. TAMSULOSIN [Concomitant]
     Active Substance: TAMSULOSIN
  6. AZATHIOPRINE. [Concomitant]
     Active Substance: AZATHIOPRINE
  7. CARVEDILOL. [Concomitant]
     Active Substance: CARVEDILOL
  8. DAPSONE. [Concomitant]
     Active Substance: DAPSONE
  9. METOPROLOL TARTRATE. [Concomitant]
     Active Substance: METOPROLOL TARTRATE
  10. ASPIRIN. [Concomitant]
     Active Substance: ASPIRIN
  11. MYCOPHENOLIC [Concomitant]
     Active Substance: MYCOPHENOLIC ACID
  12. VALGANCICLOVOR [Concomitant]
  13. VELTASSA [Concomitant]
     Active Substance: PATIROMER
  14. MULTIVITAMIN [Concomitant]
     Active Substance: VITAMINS
  15. SOD CITRATE [Concomitant]
  16. FAMOTIDINE. [Concomitant]
     Active Substance: FAMOTIDINE
  17. SODIUM BICAR [Concomitant]
  18. TACROLIMUS. [Concomitant]
     Active Substance: TACROLIMUS

REACTIONS (1)
  - Renal transplant [None]

NARRATIVE: CASE EVENT DATE: 20200515
